FAERS Safety Report 18669413 (Version 1)
Quarter: 2020Q4

REPORT INFORMATION
  Report Type: Spontaneous
  Country: US (occurrence: US)
  Receive Date: 20201228
  Receipt Date: 20201228
  Transmission Date: 20210114
  Serious: Yes (Other)
  Sender: FDA-Public Use
  Company Number: US-EMD SERONO-9209473

PATIENT
  Sex: Female

DRUGS (1)
  1. OVIDREL [Suspect]
     Active Substance: CHORIOGONADOTROPIN ALFA
     Indication: INFERTILITY FEMALE
     Dosage: 250 MCG/ML

REACTIONS (4)
  - Syncope [Unknown]
  - Drug administered in wrong device [Unknown]
  - Needle issue [Unknown]
  - Injection site pain [Unknown]
